FAERS Safety Report 21477870 (Version 2)
Quarter: 2024Q4

REPORT INFORMATION
  Report Type: Spontaneous
  Country: IT (occurrence: None)
  Receive Date: 20221019
  Receipt Date: 20241105
  Transmission Date: 20250114
  Serious: Yes (Other)
  Sender: ISTITUTO BICHIMICO ITALIANO GIOVANNI LORENZINI (IBIGEN)
  Company Number: IT-MINISAL02-887111 (IT-MINISAL02-887111)

PATIENT
  Age: 70 Year
  Sex: Male

DRUGS (2)
  1. DAPTOMYCIN [Suspect]
     Active Substance: DAPTOMYCIN
     Indication: Skin bacterial infection
     Dosage: 350 MG/DIE ()
     Route: 040
     Dates: start: 20220916, end: 20220921
  2. PIPERACILLIN SODIUM\TAZOBACTAM SODIUM [Suspect]
     Active Substance: PIPERACILLIN SODIUM\TAZOBACTAM SODIUM
     Indication: Skin bacterial infection
     Dosage: 2.250 G X3/DIE EV ()
     Route: 040
     Dates: start: 20220914, end: 20220921

REACTIONS (3)
  - Autoimmune anaemia [Recovering/Resolving]
  - Thrombocytopenia [Recovering/Resolving]
  - Leukocytosis [Recovering/Resolving]

NARRATIVE: CASE EVENT DATE: 20220918
